FAERS Safety Report 9151840 (Version 2)
Quarter: 2013Q2

REPORT INFORMATION
  Report Type: Spontaneous
  Country: US (occurrence: US)
  Receive Date: 20130308
  Receipt Date: 20130528
  Transmission Date: 20140414
  Serious: Yes (Other)
  Sender: FDA-Public Use
  Company Number: US-GLAXOSMITHKLINE-A1015011A

PATIENT
  Age: 68 Year
  Sex: Female

DRUGS (1)
  1. LOVAZA [Suspect]
     Indication: PRODUCT USED FOR UNKNOWN INDICATION
     Dosage: 1G UNKNOWN
     Route: 065
     Dates: start: 20121206

REACTIONS (4)
  - Intracranial aneurysm [Unknown]
  - Blood cholesterol increased [Unknown]
  - Arthritis [Unknown]
  - Cardiac disorder [Unknown]
